FAERS Safety Report 6018903-3 (Version None)
Quarter: 2008Q4

REPORT INFORMATION
  Report Type: 
  Country: None (occurrence: None)
  Receive Date: 20081221
  Receipt Date: 20081221
  Transmission Date: 20090506
  Serious: No
  Sender: FDA-Public Use
  Company Number: None

PATIENT
  Sex: Male
  Weight: 82.1011 kg

DRUGS (2)
  1. VANCOMYCIN HCL [Suspect]
     Indication: ARTHRITIS INFECTIVE
     Dosage: 1 GRAM Q12H IV
     Route: 042
     Dates: start: 20081220
  2. VANCOMYCIN HCL [Suspect]
     Indication: SOFT TISSUE INFECTION
     Dosage: 1 GRAM Q12H IV
     Route: 042
     Dates: start: 20081220

REACTIONS (3)
  - INFUSION SITE URTICARIA [None]
  - TENSION HEADACHE [None]
  - URTICARIA [None]
